FAERS Safety Report 4294518-2 (Version None)
Quarter: 2004Q1

REPORT INFORMATION
  Report Type: 
  Country: None (occurrence: None)
  Receive Date: 20040211
  Receipt Date: 20040113
  Transmission Date: 20041129
  Serious: Yes (Hospitalization)
  Sender: FDA-Public Use
  Company Number: B0287484A

PATIENT
  Age: 27 Year
  Sex: Male

DRUGS (3)
  1. LAMOTRIGINE [Suspect]
     Indication: EPILEPSY
     Dosage: ORAL
     Route: 048
     Dates: start: 20020604, end: 20020620
  2. PHENYTOIN [Suspect]
     Indication: EPILEPSY
     Dosage: ORAL
     Route: 048
     Dates: end: 20020620
  3. PROPACETAMOL HCL [Concomitant]

REACTIONS (14)
  - CHOLESTASIS [None]
  - CONJUNCTIVITIS [None]
  - DISSEMINATED INTRAVASCULAR COAGULATION [None]
  - HEPATITIS [None]
  - HEPATOCELLULAR DAMAGE [None]
  - HEPATOSPLENOMEGALY [None]
  - HISTIOCYTOSIS HAEMATOPHAGIC [None]
  - HYPERSENSITIVITY [None]
  - LUPUS-LIKE SYNDROME [None]
  - MENINGITIS ASEPTIC [None]
  - MOUTH ULCERATION [None]
  - POLYARTHRITIS [None]
  - RASH [None]
  - THROMBOCYTOPENIA [None]
